FAERS Safety Report 6490212-8 (Version None)
Quarter: 2009Q4

REPORT INFORMATION
  Report Type: 
  Country: None (occurrence: None)
  Receive Date: 20091211
  Receipt Date: 20091202
  Transmission Date: 20100525
  Serious: Yes (Other)
  Sender: FDA-Public Use
  Company Number: US-ASTRAZENECA-2009SE15165

PATIENT
  Age: 57 Year
  Sex: Male
  Weight: 81.6 kg

DRUGS (7)
  1. CRESTOR [Suspect]
     Indication: HYPERLIPIDAEMIA
     Route: 048
     Dates: start: 20051201
  2. QUINARETIC [Concomitant]
     Indication: HYPERTENSION
     Dosage: 20/12.5 MG QD
     Route: 048
     Dates: start: 20061018
  3. ALDACTONE [Concomitant]
     Indication: MYOCARDIAL ISCHAEMIA
     Route: 048
     Dates: start: 20061018
  4. COREG [Concomitant]
     Indication: MYOCARDIAL ISCHAEMIA
     Route: 048
     Dates: start: 20060919
  5. ASPIRIN [Concomitant]
     Route: 048
  6. FISH OIL [Concomitant]
  7. NITROGLYCERIN [Concomitant]
     Indication: ANGINA PECTORIS
     Dosage: AS REQUIRED
     Route: 048
     Dates: start: 20060823

REACTIONS (2)
  - CORONARY ARTERY DISEASE [None]
  - MYOCARDIAL INFARCTION [None]
